FAERS Safety Report 24766864 (Version 2)
Quarter: 2025Q1

REPORT INFORMATION
  Report Type: Spontaneous
  Country: US (occurrence: US)
  Receive Date: 20241223
  Receipt Date: 20250113
  Transmission Date: 20250409
  Serious: No
  Sender: SANOFI AVENTIS
  Company Number: US-SA-2024SA376580

PATIENT
  Age: 35 Year
  Sex: Male

DRUGS (1)
  1. CAPRELSA [Suspect]
     Active Substance: VANDETANIB
     Indication: Thyroid cancer
     Dosage: 100 MG, TID
     Route: 048

REACTIONS (2)
  - Somnolence [Unknown]
  - Product dose omission in error [Unknown]
